FAERS Safety Report 5479339-7 (Version None)
Quarter: 2007Q4

REPORT INFORMATION
  Report Type: 
  Country: None (occurrence: None)
  Receive Date: 20071008
  Receipt Date: 20071003
  Transmission Date: 20080405
  Serious: Yes (Hospitalization)
  Sender: FDA-Public Use
  Company Number: JP-BAYER-200710716BYL

PATIENT
  Age: 75 Year
  Sex: Male

DRUGS (2)
  1. CIPROXAN-I.V. [Suspect]
     Indication: SEPSIS
     Route: 042
     Dates: start: 20070928, end: 20070930
  2. PRAVASTATIN [Concomitant]
     Dosage: TOTAL DAILY DOSE: 10 MG  UNIT DOSE: 10 MG
     Route: 048

REACTIONS (2)
  - DRUG ERUPTION [None]
  - RHABDOMYOLYSIS [None]
